FAERS Safety Report 4988030-2 (Version None)
Quarter: 2006Q2

REPORT INFORMATION
  Report Type: 
  Country: None (occurrence: None)
  Receive Date: 20060424
  Receipt Date: 20060413
  Transmission Date: 20061013
  Serious: Yes (Hospitalization, Other)
  Sender: FDA-Public Use
  Company Number: 224118

PATIENT
  Age: 35 Year
  Sex: Female

DRUGS (10)
  1. XOLAIR [Suspect]
     Indication: ASTHMA
     Dosage: 300 MG, X4,
     Dates: start: 20060113
  2. THEOPHYLLINE [Concomitant]
  3. SALBUTAMOL (ALBUTEROL/ALBUTEROL SULFATE) [Concomitant]
  4. FLUTICASONE (FLUTICASONE PROPIONATE) [Concomitant]
  5. OXIS (FORMOTEROL FUMARATE) [Concomitant]
  6. CARBOCISTEINE (CARBOCYSTEINE) [Concomitant]
  7. MONTELUKAST (MONTELUKAST SODIUM) [Concomitant]
  8. ACETAMINOPHEN [Concomitant]
  9. CODEINE (CODEINE) [Concomitant]
  10. PREDNISOLONE [Concomitant]

REACTIONS (6)
  - ASTHMA [None]
  - CONDITION AGGRAVATED [None]
  - HEADACHE [None]
  - PAROTITIS [None]
  - REFUSAL OF TREATMENT BY PATIENT [None]
  - TREATMENT NONCOMPLIANCE [None]
